FAERS Safety Report 25386962 (Version 1)
Quarter: 2025Q2

REPORT INFORMATION
  Report Type: Report from Study
  Country: US (occurrence: US)
  Receive Date: 20250602
  Receipt Date: 20250602
  Transmission Date: 20250716
  Serious: Yes (Other)
  Sender: ALEXION PHARMACEUTICALS
  Company Number: US-AstraZeneca-CH-00879502A

PATIENT

DRUGS (1)
  1. GLYCOPYRRONIUM\FORMOTEROL FUMARATE [Suspect]
     Active Substance: GLYCOPYRRONIUM\FORMOTEROL FUMARATE
     Dosage: 2 MICROGRAM PER INHALATION, BID

REACTIONS (5)
  - Pathological fracture [Unknown]
  - Sleep disorder [Unknown]
  - Muscle spasms [Unknown]
  - Bone disorder [Unknown]
  - Fall [Unknown]
